FAERS Safety Report 7647374-6 (Version None)
Quarter: 2011Q3

REPORT INFORMATION
  Report Type: 
  Country: None (occurrence: None)
  Receive Date: 20110801
  Receipt Date: 20110720
  Transmission Date: 20111222
  Serious: Yes (Other)
  Sender: FDA-Public Use
  Company Number: JP-ROCHE-793053

PATIENT
  Age: 62 Year
  Sex: Male

DRUGS (1)
  1. PEGASYS [Suspect]
     Indication: HEPATITIS C
     Dosage: DOSAGE IS UNCERTAIN.
     Route: 058

REACTIONS (1)
  - LANGERHANS' CELL HISTIOCYTOSIS [None]
